FAERS Safety Report 14091659 (Version 2)
Quarter: 2017Q4

REPORT INFORMATION
  Report Type: Report from Study
  Country: US (occurrence: US)
  Receive Date: 20171016
  Receipt Date: 20171027
  Transmission Date: 20180321
  Serious: Yes (Other)
  Sender: FDA-Public Use
  Company Number: US-AMGEN-USASL2017153853

PATIENT
  Age: 83 Year
  Sex: Female

DRUGS (1)
  1. REPATHA [Suspect]
     Active Substance: EVOLOCUMAB
     Indication: BLOOD CHOLESTEROL INCREASED
     Dosage: 140 MG, Q2WK
     Route: 065

REACTIONS (9)
  - Cough [Unknown]
  - Fatigue [Unknown]
  - Rectal haemorrhage [Unknown]
  - Gingival pain [Unknown]
  - Night sweats [Unknown]
  - Constipation [Unknown]
  - Back pain [Unknown]
  - Injection site pain [Unknown]
  - Rhinorrhoea [Not Recovered/Not Resolved]
